FAERS Safety Report 4985026-1 (Version None)
Quarter: 2006Q2

REPORT INFORMATION
  Report Type: 
  Country: None (occurrence: None)
  Receive Date: 20060421
  Receipt Date: 20060412
  Transmission Date: 20061013
  Serious: Yes (Hospitalization)
  Sender: FDA-Public Use
  Company Number: 2006VX000416

PATIENT
  Age: 55 Year
  Sex: Male

DRUGS (2)
  1. PERMAX [Suspect]
     Indication: PARKINSON'S DISEASE
     Dosage: 1500 UG; PO
     Route: 048
  2. SINEMET [Suspect]
     Indication: PARKINSON'S DISEASE
     Dosage: 150 MG; PO
     Route: 048

REACTIONS (6)
  - DELIRIUM [None]
  - EXCITABILITY [None]
  - FRACTURE [None]
  - HALLUCINATION [None]
  - INSOMNIA [None]
  - STRESS [None]
